FAERS Safety Report 6481699-5 (Version None)
Quarter: 2009Q4

REPORT INFORMATION
  Report Type: 
  Country: None (occurrence: None)
  Receive Date: 20091208
  Receipt Date: 20090323
  Transmission Date: 20100525
  Serious: No
  Sender: FDA-Public Use
  Company Number: US-AMGEN-KDL339735

PATIENT
  Sex: Female

DRUGS (2)
  1. ENBREL [Suspect]
     Indication: RHEUMATOID ARTHRITIS
     Route: 058
     Dates: start: 20080501
  2. METHOTREXATE [Concomitant]
     Route: 048

REACTIONS (9)
  - DENTAL CARIES [None]
  - DRY MOUTH [None]
  - DYSGEUSIA [None]
  - GINGIVAL PAIN [None]
  - IMPAIRED HEALING [None]
  - LOOSE TOOTH [None]
  - PAIN IN JAW [None]
  - SJOGREN'S SYNDROME [None]
  - TOOTHACHE [None]
